FAERS Safety Report 11531048 (Version 1)
Quarter: 2015Q3

REPORT INFORMATION
  Report Type: Spontaneous
  Country: US (occurrence: US)
  Receive Date: 20150903
  Receipt Date: 20150903
  Transmission Date: 20151125
  Serious: No
  Sender: FDA-Public Use
  Company Number: US-ELI_LILLY_AND_COMPANY-US201407003012

PATIENT
  Age: 39 Year
  Sex: Female
  Weight: 41.27 kg

DRUGS (1)
  1. CYMBALTA [Suspect]
     Active Substance: DULOXETINE HYDROCHLORIDE
     Indication: DEPRESSION
     Dosage: 60 MG, QD
     Route: 065
     Dates: start: 2009, end: 201404

REACTIONS (2)
  - Exposure during pregnancy [Recovered/Resolved]
  - Exposure during breast feeding [Recovered/Resolved]

NARRATIVE: CASE EVENT DATE: 201212
